FAERS Safety Report 15542992 (Version 1)
Quarter: 2018Q4

REPORT INFORMATION
  Report Type: Spontaneous
  Country: BE (occurrence: BE)
  Receive Date: 20181023
  Receipt Date: 20181023
  Transmission Date: 20190205
  Serious: Yes (Other)
  Sender: FDA-Public Use
  Company Number: BE-TEVA-2018-BE-966812

PATIENT
  Age: 69 Year
  Sex: Female
  Weight: 70 kg

DRUGS (7)
  1. PRAVASTATINE 20 MG [Suspect]
     Active Substance: PRAVASTATIN SODIUM
     Indication: BLOOD CHOLESTEROL
     Dosage: 1 DOSAGE FORMS DAILY;
     Route: 065
     Dates: start: 20150731
  2. LYRICA [Interacting]
     Active Substance: PREGABALIN
     Indication: NEURALGIA
     Dosage: 3 DOSAGE FORMS DAILY;
     Route: 065
     Dates: start: 20180505
  3. RIVOTRIL 0,5 MG [Concomitant]
     Indication: SLEEP DISORDER
     Dosage: 1 DOSAGE FORMS DAILY;
     Route: 065
     Dates: start: 20141205
  4. FUROSEMIDE 40 MG [Concomitant]
     Active Substance: FUROSEMIDE
     Indication: HYPERTENSION
     Dosage: 1 DOSAGE FORMS DAILY;
     Route: 065
     Dates: start: 20180627
  5. CETIRIZINE [Interacting]
     Active Substance: CETIRIZINE HYDROCHLORIDE
     Indication: HYPERSENSITIVITY
     Dosage: 1 DOSAGE FORMS DAILY;
     Route: 065
     Dates: start: 20120112
  6. BETAHISTINE 16MG [Concomitant]
     Indication: MENIERE^S DISEASE
     Dosage: 1 DOSAGE FORMS DAILY;
     Dates: start: 20120112
  7. FLUOXETINE [Interacting]
     Active Substance: FLUOXETINE HYDROCHLORIDE
     Indication: DEPRESSION
     Dosage: 1 DOSAGE FORMS DAILY;
     Route: 065
     Dates: start: 20120112

REACTIONS (3)
  - Urinary retention [Recovered/Resolved]
  - Drug interaction [Recovered/Resolved]
  - Dysuria [Recovered/Resolved]

NARRATIVE: CASE EVENT DATE: 20180627
